FAERS Safety Report 15802007 (Version 2)
Quarter: 2019Q1

REPORT INFORMATION
  Report Type: Report from Study
  Country: CA (occurrence: CA)
  Receive Date: 20190109
  Receipt Date: 20190109
  Transmission Date: 20190417
  Serious: Yes (Other)
  Sender: FDA-Public Use
  Company Number: PHHY2018CA200018

PATIENT
  Age: 20 Year
  Sex: Male

DRUGS (9)
  1. CARBAMAZEPINE. [Suspect]
     Active Substance: CARBAMAZEPINE
     Indication: SCHIZOPHRENIA
     Route: 065
  2. LEPONEX [Suspect]
     Active Substance: CLOZAPINE
     Indication: SCHIZOPHRENIA
     Route: 065
  3. HALOPERIDOL. [Suspect]
     Active Substance: HALOPERIDOL
     Indication: SCHIZOPHRENIA
     Route: 065
  4. LOXAPINE. [Suspect]
     Active Substance: LOXAPINE
     Indication: SCHIZOPHRENIA
     Dosage: 1 DF, QD
     Route: 065
  5. VALPROIC ACID. [Suspect]
     Active Substance: VALPROIC ACID
     Indication: SCHIZOPHRENIA
     Route: 065
  6. PHENYTOIN. [Suspect]
     Active Substance: PHENYTOIN
     Indication: SCHIZOPHRENIA
     Route: 065
  7. OLANZAPINE. [Suspect]
     Active Substance: OLANZAPINE
     Indication: SCHIZOPHRENIA
     Dosage: 30 MG, UNK
     Route: 065
  8. APO-VALPROIC [Suspect]
     Active Substance: VALPROIC ACID
     Indication: SCHIZOPHRENIA
     Route: 065
  9. ZOLPIDEM [Suspect]
     Active Substance: ZOLPIDEM\ZOLPIDEM TARTRATE
     Indication: SCHIZOPHRENIA
     Route: 065

REACTIONS (3)
  - Drug ineffective [Unknown]
  - Treatment failure [Unknown]
  - Drug resistance [Unknown]
